FAERS Safety Report 4744552-0 (Version None)
Quarter: 2005Q3

REPORT INFORMATION
  Report Type: 
  Country: None (occurrence: None)
  Receive Date: 20050809
  Receipt Date: 20050408
  Transmission Date: 20060218
  Serious: Yes (Hospitalization, Other)
  Sender: FDA-Public Use
  Company Number: 2005057336

PATIENT
  Age: 61 Year
  Sex: Female

DRUGS (2)
  1. MINIZIDE [Suspect]
     Indication: HYPERTENSION
     Dosage: 3 TIMES WEEKLY, ORAL
     Route: 048
     Dates: start: 20050224, end: 20050227
  2. VITAMINS (VITAMINS) [Concomitant]

REACTIONS (4)
  - DIZZINESS [None]
  - FALL [None]
  - LOSS OF CONSCIOUSNESS [None]
  - OVERDOSE [None]
